FAERS Safety Report 12464865 (Version 2)
Quarter: 2016Q3

REPORT INFORMATION
  Report Type: Spontaneous
  Country: IT (occurrence: IT)
  Receive Date: 20160614
  Receipt Date: 20160824
  Transmission Date: 20161109
  Serious: Yes (Other)
  Sender: FDA-Public Use
  Company Number: IT-TEVA-667423ISR

PATIENT
  Age: 49 Year
  Sex: Male

DRUGS (1)
  1. OLANZAPINE. [Suspect]
     Active Substance: OLANZAPINE
     Route: 030

REACTIONS (3)
  - Sinus tachycardia [Recovered/Resolved]
  - Coma scale abnormal [Recovered/Resolved]
  - Lethargy [Recovered/Resolved]
